FAERS Safety Report 8159698-7 (Version None)
Quarter: 2012Q1

REPORT INFORMATION
  Report Type: 
  Country: None (occurrence: None)
  Receive Date: 20120223
  Receipt Date: 20120217
  Transmission Date: 20120608
  Serious: Yes (Other)
  Sender: FDA-Public Use
  Company Number: US-JNJFOC-20120210900

PATIENT
  Age: 73 Year
  Sex: Male
  Weight: 92.99 kg

DRUGS (7)
  1. SULFATRIM-DS [Concomitant]
     Indication: PROSTATE INFECTION
     Route: 065
  2. BENADRYL [Suspect]
     Indication: SNEEZING
     Route: 048
     Dates: start: 20120211, end: 20120211
  3. BENADRYL [Suspect]
     Indication: MULTIPLE ALLERGIES
     Route: 048
     Dates: start: 20120211, end: 20120211
  4. ALBUTEROL [Concomitant]
     Indication: ASTHMA
     Route: 065
  5. LOVASTATIN [Concomitant]
     Indication: PRODUCT USED FOR UNKNOWN INDICATION
     Route: 065
  6. TRIAMCINOLONE [Concomitant]
     Indication: NASAL CONGESTION
     Route: 065
  7. OXYMETAZOLINE HYDROCHLORIDE [Concomitant]
     Indication: MULTIPLE ALLERGIES
     Route: 045

REACTIONS (3)
  - CHEST DISCOMFORT [None]
  - HEART RATE IRREGULAR [None]
  - BRONCHITIS [None]
